FAERS Safety Report 14972461 (Version 2)
Quarter: 2018Q3

REPORT INFORMATION
  Report Type: Spontaneous
  Country: US (occurrence: US)
  Receive Date: 20180605
  Receipt Date: 20180711
  Transmission Date: 20181010
  Serious: Yes (Other)
  Sender: FDA-Public Use
  Company Number: US-AMGEN-USASP2018072897

PATIENT
  Age: 64 Year
  Sex: Female
  Weight: 58.6 kg

DRUGS (2)
  1. ENBREL [Suspect]
     Active Substance: ETANERCEPT
     Indication: PRODUCT USED FOR UNKNOWN INDICATION
     Dosage: UNK
     Route: 065
  2. XELJANZ [Suspect]
     Active Substance: TOFACITINIB CITRATE
     Indication: RHEUMATOID ARTHRITIS
     Dosage: 5 MG, BID
     Route: 048
     Dates: start: 20180518

REACTIONS (10)
  - Speech disorder [Unknown]
  - Myalgia [Not Recovered/Not Resolved]
  - Drug hypersensitivity [Unknown]
  - Malignant melanoma [Recovered/Resolved]
  - Spinal pain [Not Recovered/Not Resolved]
  - Synovitis [Unknown]
  - Night sweats [Not Recovered/Not Resolved]
  - Balance disorder [Unknown]
  - Headache [Not Recovered/Not Resolved]
  - Neck pain [Unknown]

NARRATIVE: CASE EVENT DATE: 2004
